FAERS Safety Report 5945166-7 (Version None)
Quarter: 2008Q4

REPORT INFORMATION
  Report Type: 
  Country: None (occurrence: None)
  Receive Date: 20081107
  Receipt Date: 20081105
  Transmission Date: 20090506
  Serious: Yes (Death)
  Sender: FDA-Public Use
  Company Number: A0755445A

PATIENT
  Age: 66 Year
  Sex: Male
  Weight: 72 kg

DRUGS (2)
  1. SERETIDE [Suspect]
     Indication: CHRONIC OBSTRUCTIVE PULMONARY DISEASE
     Route: 055
     Dates: start: 20070401, end: 20070604
  2. PREDNISONE TAB [Concomitant]
     Route: 048

REACTIONS (1)
  - CARDIAC ARREST [None]
